FAERS Safety Report 9294127 (Version 2)
Quarter: 2013Q3

REPORT INFORMATION
  Report Type: Spontaneous
  Country: US (occurrence: US)
  Receive Date: 20130516
  Receipt Date: 20130703
  Transmission Date: 20140515
  Serious: Yes (Hospitalization)
  Sender: FDA-Public Use
  Company Number: US-PFIZER INC-2013150765

PATIENT
  Age: 55 Year
  Sex: Male
  Weight: 90.7 kg

DRUGS (3)
  1. ADVIL PM [Suspect]
     Indication: ARTHRITIS
     Dosage: 2 DF, 3 TIMES EVERY ALTERNATE DAY
     Route: 048
     Dates: start: 2008
  2. ROSIDEN [Concomitant]
     Indication: PAIN
     Dosage: UNK
  3. ADVIL [Concomitant]
     Dosage: UNK

REACTIONS (3)
  - Arthropathy [Unknown]
  - Poor quality drug administered [Unknown]
  - Product quality issue [Unknown]
